FAERS Safety Report 5788313-2 (Version None)
Quarter: 2008Q2

REPORT INFORMATION
  Report Type: 
  Country: None (occurrence: None)
  Receive Date: 20080623
  Receipt Date: 20080617
  Transmission Date: 20081010
  Serious: Yes (Other)
  Sender: FDA-Public Use
  Company Number: CHPA2008US10199

PATIENT
  Age: 89 Year
  Sex: Male
  Weight: 72.6 kg

DRUGS (4)
  1. MAALOX ANTACID/ANTIGAS MAX STR MULTI SYMPTOM (MAGNESIUM HYDROXIDE, ALU [Suspect]
     Indication: STOMACH DISCOMFORT
     Dosage: FOR MANY YEARS, ORAL
     Route: 048
  2. PANTOPRAZOLE SODIUM [Concomitant]
  3. ALPRAZOLAM [Concomitant]
  4. FUROSEMIDE [Concomitant]

REACTIONS (4)
  - CARDIAC FAILURE CONGESTIVE [None]
  - CARDIAC PACEMAKER INSERTION [None]
  - OVERDOSE [None]
  - SENILE DEMENTIA [None]
